FAERS Safety Report 6923873-7 (Version None)
Quarter: 2010Q3

REPORT INFORMATION
  Report Type: 
  Country: None (occurrence: None)
  Receive Date: 20100813
  Receipt Date: 20100330
  Transmission Date: 20110219
  Serious: No
  Sender: FDA-Public Use
  Company Number: US-BRISTOL-MYERS SQUIBB COMPANY-14972202

PATIENT
  Age: 45 Year
  Sex: Male

DRUGS (3)
  1. REYATAZ [Suspect]
     Indication: HIV TEST POSITIVE
     Route: 048
     Dates: start: 20050101, end: 20100201
  2. NORVIR [Suspect]
     Dates: end: 20100201
  3. TRUVADA [Suspect]
     Dates: end: 20100201

REACTIONS (1)
  - NEPHROLITHIASIS [None]
